FAERS Safety Report 6412363-6 (Version None)
Quarter: 2009Q4

REPORT INFORMATION
  Report Type: 
  Country: None (occurrence: None)
  Receive Date: 20091023
  Receipt Date: 20091016
  Transmission Date: 20100525
  Serious: Yes (Hospitalization, Other)
  Sender: FDA-Public Use
  Company Number: DE-AMGEN-UK007250

PATIENT
  Age: 48 Year
  Sex: Male

DRUGS (12)
  1. ARANESP [Suspect]
     Indication: DIALYSIS
     Route: 042
     Dates: start: 20010827, end: 20010903
  2. ERYPO [Suspect]
     Dates: start: 20000801, end: 20010820
  3. RECORMON [Suspect]
     Dates: start: 20010820, end: 20010827
  4. ENALAPRIL MALEATE [Concomitant]
     Dates: start: 20010701
  5. ATENOLOL [Concomitant]
  6. CALCIUM ACETATE [Concomitant]
  7. MULTI-VITAMINS [Concomitant]
  8. DOXAZOSIN MESYLATE [Concomitant]
  9. FUROSEMIDE [Concomitant]
  10. LOVASTATIN [Concomitant]
  11. FERRLECIT FOR INJECTION [Concomitant]
     Route: 042
     Dates: start: 20010604, end: 20010806
  12. IRON [Concomitant]
     Dates: start: 20010801

REACTIONS (5)
  - ANAPHYLACTOID REACTION [None]
  - ANTI-ERYTHROPOIETIN ANTIBODY POSITIVE [None]
  - APLASIA PURE RED CELL [None]
  - PRURITUS [None]
  - URTICARIA [None]
